FAERS Safety Report 7829088-2 (Version None)
Quarter: 2011Q4

REPORT INFORMATION
  Report Type: 
  Country: None (occurrence: None)
  Receive Date: 20111020
  Receipt Date: 20111013
  Transmission Date: 20120403
  Serious: Yes (Other)
  Sender: FDA-Public Use
  Company Number: US-BAYER-2011-099648

PATIENT
  Age: 40 Year
  Sex: Male
  Weight: 77 kg

DRUGS (6)
  1. ASPIRIN [Suspect]
     Indication: ISCHAEMIC HEART DISEASE PROPHYLAXIS
     Dosage: UNK UNK, UNK
     Route: 048
  2. ALEVE (CAPLET) [Suspect]
     Dosage: 440 MG, QD
     Route: 048
     Dates: start: 20111012
  3. ALEVE (CAPLET) [Suspect]
     Indication: HEADACHE
     Dosage: 440 MG, QD
     Route: 048
     Dates: start: 20111007, end: 20111008
  4. UNKNOWN [Concomitant]
  5. PROZAC [Concomitant]
  6. FISH OIL [Concomitant]

REACTIONS (3)
  - INTESTINAL HAEMORRHAGE [None]
  - ABDOMINAL PAIN [None]
  - ABDOMINAL TENDERNESS [None]
